FAERS Safety Report 6659554-7 (Version None)
Quarter: 2010Q1

REPORT INFORMATION
  Report Type: 
  Country: None (occurrence: None)
  Receive Date: 20100322
  Receipt Date: 20090203
  Transmission Date: 20100710
  Serious: Yes (Other)
  Sender: FDA-Public Use
  Company Number: 2009US-20541

PATIENT
  Age: 54 Year
  Sex: Female

DRUGS (2)
  1. ISOTRETINOIN [Suspect]
     Indication: ACNE
     Dosage: 40 MG, BID, ORAL
     Route: 048
  2. CLARAVIS [Suspect]
     Indication: ACNE
     Dosage: 40 MG, BID, ORAL
     Route: 048
     Dates: start: 20080922, end: 20090105

REACTIONS (2)
  - DEPRESSION [None]
  - SUICIDAL IDEATION [None]
